FAERS Safety Report 12503506 (Version 8)
Quarter: 2016Q3

REPORT INFORMATION
  Report Type: Spontaneous
  Country: US (occurrence: US)
  Receive Date: 20160628
  Receipt Date: 20160902
  Transmission Date: 20161109
  Serious: Yes (Other)
  Sender: FDA-Public Use
  Company Number: US-PFIZER INC-2016315828

PATIENT
  Age: 50 Year
  Sex: Female
  Weight: 107.9 kg

DRUGS (1)
  1. NICOTROL [Suspect]
     Active Substance: NICOTINE
     Indication: SMOKING CESSATION THERAPY
     Dosage: UNK

REACTIONS (8)
  - Drug intolerance [Unknown]
  - Asthenia [Unknown]
  - Product quality issue [Unknown]
  - Drug dependence [Unknown]
  - Headache [Unknown]
  - Feeling abnormal [Unknown]
  - Intentional product misuse [Unknown]
  - Malaise [Unknown]
